FAERS Safety Report 4651860-0 (Version None)
Quarter: 2005Q2

REPORT INFORMATION
  Report Type: 
  Country: None (occurrence: None)
  Receive Date: 20050504
  Receipt Date: 20050502
  Transmission Date: 20051028
  Serious: Yes (Hospitalization)
  Sender: FDA-Public Use
  Company Number: 149

PATIENT
  Age: 56 Year
  Sex: Male

DRUGS (5)
  1. MELPHALAN [Suspect]
     Indication: MULTIPLE MYELOMA
     Dosage: 394MG SINGLE DOSE
     Route: 042
     Dates: start: 20050216, end: 20050216
  2. THALIDOMIDE [Suspect]
     Indication: MULTIPLE MYELOMA
     Route: 048
     Dates: start: 20050117
  3. DEXAMETHASONE [Concomitant]
     Indication: MULTIPLE MYELOMA
     Dates: start: 20050215
  4. VELCADE [Concomitant]
     Indication: MULTIPLE MYELOMA
  5. LOVENOX [Concomitant]

REACTIONS (4)
  - FATIGUE [None]
  - HAEMATOCHEZIA [None]
  - PANCYTOPENIA [None]
  - RECTAL HAEMORRHAGE [None]
